FAERS Safety Report 9916445 (Version 2)
Quarter: 2014Q1

REPORT INFORMATION
  Report Type: Spontaneous
  Country: GB (occurrence: GB)
  Receive Date: 20140221
  Receipt Date: 20140221
  Transmission Date: 20141002
  Serious: Yes (Other)
  Sender: FDA-Public Use
  Company Number: PHFR2014GB000899

PATIENT
  Age: 30 Year
  Sex: Male

DRUGS (2)
  1. CLOZARIL [Suspect]
     Dosage: 350 UKN, UNK, DAILY
     Route: 048
     Dates: start: 20131007
  2. LITHIUM [Concomitant]
     Dosage: UNK UKN, UNK

REACTIONS (3)
  - White blood cell count increased [Recovering/Resolving]
  - Neutrophil count increased [Unknown]
  - Monocyte count increased [Unknown]
